FAERS Safety Report 9107386 (Version 1)
Quarter: 2013Q1

REPORT INFORMATION
  Report Type: Report from Study
  Country: US (occurrence: US)
  Receive Date: 20130221
  Receipt Date: 20130221
  Transmission Date: 20140127
  Serious: Yes (Other)
  Sender: FDA-Public Use
  Company Number: US-JNJFOC-20130205549

PATIENT
  Sex: Male
  Weight: 70.31 kg

DRUGS (3)
  1. REMICADE [Suspect]
     Indication: CROHN^S DISEASE
     Dosage: INITIATED IN 2008/2009 UNSURE AND DOSE WAS 300MG OR 100MG
     Route: 042
  2. PREDNISONE [Concomitant]
     Dosage: ALTERNATING WITH 5 MG
     Route: 048
  3. UNKNOWN MEDICATION [Concomitant]
     Route: 065

REACTIONS (5)
  - Osteoarthritis [Not Recovered/Not Resolved]
  - Arthropathy [Not Recovered/Not Resolved]
  - Blood chromium [Not Recovered/Not Resolved]
  - Post procedural complication [Not Recovered/Not Resolved]
  - Adverse event [Unknown]
